FAERS Safety Report 20064553 (Version 1)
Quarter: 2021Q4

REPORT INFORMATION
  Report Type: Report from Study
  Country: US (occurrence: None)
  Receive Date: 20211112
  Receipt Date: 20211112
  Transmission Date: 20220303
  Serious: Yes (Other)
  Sender: FDA-Public Use
  Company Number: US-Eisai Medical Research-EC-2021-102734

PATIENT
  Age: 59 Year
  Sex: Female
  Weight: 37.1 kg

DRUGS (20)
  1. LENVIMA [Suspect]
     Active Substance: LENVATINIB
     Indication: Endometrial cancer
     Route: 048
     Dates: start: 20200707, end: 20211015
  2. LENVIMA [Suspect]
     Active Substance: LENVATINIB
     Indication: Uterine cancer
  3. KEYTRUDA [Concomitant]
     Active Substance: PEMBROLIZUMAB
  4. ACETAMINOPHEN [Concomitant]
     Active Substance: ACETAMINOPHEN
     Indication: Pain
  5. ACETAMINOPHEN [Concomitant]
     Active Substance: ACETAMINOPHEN
     Indication: Pyrexia
  6. FENTANYL [Concomitant]
     Active Substance: FENTANYL
     Indication: Pain
     Route: 041
  7. NALOXONE [Concomitant]
     Active Substance: NALOXONE
     Route: 041
  8. OXYCODONE [Concomitant]
     Active Substance: OXYCODONE
  9. SODIUM CHLORIDE [Concomitant]
     Active Substance: SODIUM CHLORIDE
     Dosage: 0.09%
     Route: 041
  10. DULOXETINE [Concomitant]
     Active Substance: DULOXETINE
     Route: 048
  11. ENOXAPARIN [Concomitant]
     Active Substance: ENOXAPARIN
     Indication: Thrombosis
     Route: 058
  12. HYDROMORPHONE [Concomitant]
     Active Substance: HYDROMORPHONE
     Dosage: 0.2 MG/ML 30 ML
     Route: 041
  13. LEVOTHYROXINE [Concomitant]
     Active Substance: LEVOTHYROXINE
     Route: 048
  14. PANTOPRAZOLE [Concomitant]
     Active Substance: PANTOPRAZOLE
     Indication: Gastrooesophageal reflux disease
     Route: 048
  15. ONDANSETRON [Concomitant]
     Active Substance: ONDANSETRON
     Indication: Nausea
  16. ALBUTEROL\IPRATROPIUM [Concomitant]
     Active Substance: ALBUTEROL\IPRATROPIUM
     Dosage: 2.5 MG - 0.5MG/3ML
  17. ATORVASTATIN [Concomitant]
     Active Substance: ATORVASTATIN
     Route: 048
  18. CEFTRIAXONE [Concomitant]
     Active Substance: CEFTRIAXONE
     Dates: end: 20211018
  19. DEXMEDETOMIDINE [Concomitant]
     Active Substance: DEXMEDETOMIDINE
     Route: 041
  20. METRONIDAZOLE [Concomitant]
     Active Substance: METRONIDAZOLE
     Dates: end: 20211017

REACTIONS (2)
  - Osteonecrosis of jaw [Unknown]
  - Oral pain [Unknown]

NARRATIVE: CASE EVENT DATE: 20210101
